FAERS Safety Report 7113907-1 (Version None)
Quarter: 2010Q4

REPORT INFORMATION
  Report Type: 
  Country: None (occurrence: None)
  Receive Date: 20101119
  Receipt Date: 20101110
  Transmission Date: 20110411
  Serious: Yes (Hospitalization)
  Sender: FDA-Public Use
  Company Number: NL-GENZYME-CLOF-1001314

PATIENT
  Sex: Male
  Weight: 72 kg

DRUGS (6)
  1. EVOLTRA [Suspect]
     Indication: ACUTE MYELOID LEUKAEMIA
     Dosage: 20 MG, QDX5
     Route: 042
     Dates: start: 20100914, end: 20100918
  2. CYTARABINE [Suspect]
     Indication: ACUTE MYELOID LEUKAEMIA
     Dosage: 4000 MG, UNK
     Route: 042
     Dates: start: 20100914, end: 20100919
  3. AMSACRINE [Suspect]
     Indication: ACUTE MYELOID LEUKAEMIA
     Dosage: 240 MG, UNK
     Route: 042
     Dates: start: 20100917, end: 20100919
  4. METOPROLOL SUCCINATE [Concomitant]
     Indication: PRODUCT USED FOR UNKNOWN INDICATION
     Dosage: 100 MG, UNK
     Route: 048
     Dates: start: 20100913, end: 20100924
  5. LISINOPRIL [Concomitant]
     Indication: HYPERTENSION
     Dosage: 10 MG, UNK
     Route: 048
     Dates: start: 20100913, end: 20100924
  6. NORFLOXACIN [Concomitant]
     Indication: PROPHYLAXIS
     Dosage: 400 MG, UNK
     Route: 048
     Dates: start: 20100913, end: 20100924

REACTIONS (2)
  - ENTEROCOCCAL SEPSIS [None]
  - SKIN DISORDER [None]
